FAERS Safety Report 9606569 (Version 1)
Quarter: 2013Q4

REPORT INFORMATION
  Report Type: Spontaneous
  Country: US (occurrence: US)
  Receive Date: 20131008
  Receipt Date: 20131008
  Transmission Date: 20140711
  Serious: No
  Sender: FDA-Public Use
  Company Number: US-AMGEN-USASP2013057071

PATIENT
  Age: 69 Year
  Sex: Female

DRUGS (4)
  1. PROLIA [Suspect]
     Indication: PRODUCT USED FOR UNKNOWN INDICATION
     Dosage: UNK
     Route: 065
  2. LYRICA [Concomitant]
     Dosage: UNK
     Route: 065
  3. MULTIVITAMIN                       /00097801/ [Concomitant]
     Dosage: UNK
     Route: 065
  4. CALCIUM MAGNESIUM +VITAMIN D3 [Concomitant]
     Dosage: UNK
     Route: 065

REACTIONS (2)
  - Gingival bleeding [Unknown]
  - Bone disorder [Recovered/Resolved]
